FAERS Safety Report 15074353 (Version 10)
Quarter: 2019Q1

REPORT INFORMATION
  Report Type: Report from Study
  Country: None (occurrence: JP)
  Receive Date: 20180627
  Receipt Date: 20190314
  Transmission Date: 20190417
  Serious: Yes (Hospitalization)
  Sender: FDA-Public Use
  Company Number: JP-ABBVIE-18K-087-2400524-00

PATIENT
  Age: 62 Year
  Sex: Male
  Weight: 50 kg

DRUGS (25)
  1. DUODOPA [Suspect]
     Active Substance: CARBIDOPA\LEVODOPA
     Dosage: MD: 6.0 ML CD: 2.0 ML/HR ? 16 HRS
     Route: 050
     Dates: start: 20180301, end: 20180302
  2. ROTIGOTINE [Concomitant]
     Active Substance: ROTIGOTINE
     Indication: PARKINSON^S DISEASE
     Route: 062
  3. DUODOPA [Suspect]
     Active Substance: CARBIDOPA\LEVODOPA
     Dosage: MD: 9.0 ML CD: 1.7 ML/HR ? 9 HRS
     Route: 050
     Dates: start: 20180228, end: 20180301
  4. DUODOPA [Suspect]
     Active Substance: CARBIDOPA\LEVODOPA
     Dosage: MD: 9.0 ML CD: 1.9 ML/HR ? 16 HRS ED: 1.0 ML/UNIT ? 2 TIMES
     Route: 050
     Dates: start: 20180806, end: 20181017
  5. ROTIGOTINE [Concomitant]
     Active Substance: ROTIGOTINE
     Route: 062
     Dates: start: 20180302, end: 20180305
  6. ROTIGOTINE [Concomitant]
     Active Substance: ROTIGOTINE
     Route: 062
     Dates: start: 20180313
  7. MOSAPRIDE CITRATE HYDRATE [Concomitant]
     Active Substance: MOSAPRIDE CITRATE DIHYDRATE
     Indication: PRODUCT USED FOR UNKNOWN INDICATION
     Route: 048
  8. HERBAL NOS [Concomitant]
     Active Substance: HERBALS
     Indication: PRODUCT USED FOR UNKNOWN INDICATION
     Route: 048
  9. DUODOPA [Suspect]
     Active Substance: CARBIDOPA\LEVODOPA
     Indication: PRODUCT USED FOR UNKNOWN INDICATION
     Route: 050
     Dates: start: 2017
  10. ROTIGOTINE [Concomitant]
     Active Substance: ROTIGOTINE
     Route: 062
     Dates: start: 20180308, end: 20180312
  11. MAGNESIUM OXIDE. [Concomitant]
     Active Substance: MAGNESIUM OXIDE
     Indication: PRODUCT USED FOR UNKNOWN INDICATION
     Route: 048
  12. DUODOPA [Suspect]
     Active Substance: CARBIDOPA\LEVODOPA
     Dosage: MD: 6.2 ML CD: 2.8 ML/HR ? 16 HRS  ED: 1 ML/UNIT ? 2 TIMES
     Route: 050
     Dates: start: 20180305, end: 20180309
  13. DUODOPA [Suspect]
     Active Substance: CARBIDOPA\LEVODOPA
     Dosage: MD: 9.1 ML CD: 2.3 ML/HR ? 16 HRS
     Route: 050
     Dates: start: 20180315, end: 20180326
  14. DUODOPA [Suspect]
     Active Substance: CARBIDOPA\LEVODOPA
     Dosage: MD: 9.1 ML CD: 2.2 ML/HR ? 16 HRS
     Route: 050
     Dates: start: 20180326, end: 20180523
  15. DUODOPA [Suspect]
     Active Substance: CARBIDOPA\LEVODOPA
     Dosage: MD: 9.1 ML CD: 1.8 ML/HR ? 16 HRS ED: 0.9 ML/UNIT ? 2 TIMES
     Route: 050
     Dates: start: 20180707, end: 20180806
  16. DUODOPA [Suspect]
     Active Substance: CARBIDOPA\LEVODOPA
     Dosage: MD: 6.2 ML CD: 2.4 ML/HR ? 16 HRS ED: 1 ML/UNIT ? 1 TIME
     Route: 050
     Dates: start: 20180309, end: 20180315
  17. DUODOPA [Suspect]
     Active Substance: CARBIDOPA\LEVODOPA
     Dosage: MD: 9.0 ML CD: 2.0 ML/HR ? 16 HRS ED: 1.0 ML/UNIT ? 2 TIMES
     Route: 050
     Dates: start: 20181017
  18. DUODOPA [Suspect]
     Active Substance: CARBIDOPA\LEVODOPA
     Dosage: MD: 6.0 ML CD: 3.0 ML/HR ? 16 HRS ED: 1 ML/UNIT ? 1 TIME
     Route: 050
     Dates: start: 20180302, end: 20180305
  19. DUODOPA [Suspect]
     Active Substance: CARBIDOPA\LEVODOPA
     Dosage: MD: 9.1 ML CD: 1.8 ML/HR ? 16 HRS ED: 0.7 ML/UNIT ? 2 TIMES
     Route: 050
     Dates: start: 20180630, end: 20180707
  20. ROTIGOTINE [Concomitant]
     Active Substance: ROTIGOTINE
     Route: 062
     Dates: start: 20180306, end: 20180307
  21. ESOMEPRAZOLE MAGNESIUM HYDRATE [Concomitant]
     Active Substance: ESOMEPRAZOLE MAGNESIUM
     Indication: PRODUCT USED FOR UNKNOWN INDICATION
     Route: 048
  22. DUODOPA [Suspect]
     Active Substance: CARBIDOPA\LEVODOPA
     Dosage: MD: 9.1 ML CD: 2.1 ML/HR ? 16 HRS ED: 1 ML/UNIT ? 2 TIMES
     Route: 050
     Dates: start: 20180523, end: 20180617
  23. DUODOPA [Suspect]
     Active Substance: CARBIDOPA\LEVODOPA
     Dosage: MD: 9.1 ML CD: 2.0 ML/HR ? 16 HRS ED: 0.8 ML/UNIT ? 2 TIMES
     Route: 050
     Dates: start: 20180617, end: 20180624
  24. DUODOPA [Suspect]
     Active Substance: CARBIDOPA\LEVODOPA
     Dosage: MD: 9.1 ML CD: 2.0 ML/HR ? 16 HRS ED: 0.6 ML/UNIT ? 2 TIMES
     Route: 050
     Dates: start: 20180624, end: 20180630
  25. SENNOSIDES. [Concomitant]
     Active Substance: SENNOSIDES
     Indication: PRODUCT USED FOR UNKNOWN INDICATION
     Route: 048

REACTIONS (14)
  - Anaemia [Recovering/Resolving]
  - Gastrooesophageal reflux disease [Recovered/Resolved]
  - Gastrointestinal disorder [Unknown]
  - Posture abnormal [Unknown]
  - Dyskinesia [Recovering/Resolving]
  - Nausea [Unknown]
  - Stoma site erythema [Not Recovered/Not Resolved]
  - Stoma site extravasation [Not Recovered/Not Resolved]
  - Dyskinesia [Recovering/Resolving]
  - Abdominal pain [Unknown]
  - Mobility decreased [Unknown]
  - Stoma site reaction [Not Recovered/Not Resolved]
  - Mobility decreased [Unknown]
  - Akinesia [Recovering/Resolving]

NARRATIVE: CASE EVENT DATE: 2018
